FAERS Safety Report 20451575 (Version 1)
Quarter: 2022Q1

REPORT INFORMATION
  Report Type: Spontaneous
  Country: US (occurrence: US)
  Receive Date: 20220209
  Receipt Date: 20220209
  Transmission Date: 20220423
  Serious: No
  Sender: FDA-Public Use
  Company Number: US-NOVARTISTESTPH-NVSC2021US064007

PATIENT
  Age: 70 Year
  Sex: Female

DRUGS (1)
  1. PATADAY [Suspect]
     Active Substance: OLOPATADINE HYDROCHLORIDE
     Indication: Eye pruritus
     Dosage: UNK, QD
     Route: 065
     Dates: start: 20210317

REACTIONS (3)
  - Lymphoedema [Unknown]
  - Limb injury [Unknown]
  - Product packaging difficult to open [Unknown]
